FAERS Safety Report 5224893-3 (Version None)
Quarter: 2007Q1

REPORT INFORMATION
  Report Type: 
  Country: None (occurrence: None)
  Receive Date: 20070131
  Receipt Date: 20070119
  Transmission Date: 20070707
  Serious: Yes (Other)
  Sender: FDA-Public Use
  Company Number: PHBS2007IT01486

PATIENT
  Sex: Female

DRUGS (1)
  1. ZOMETA [Suspect]
     Indication: BREAST CANCER
     Dosage: 4 MG, EVERY 1 MONTH
     Route: 042

REACTIONS (6)
  - DRUG TOXICITY [None]
  - HAEMORRHAGE [None]
  - ORAL PAIN [None]
  - OSTEONECROSIS [None]
  - SURGERY [None]
  - TOOTH DISORDER [None]
